FAERS Safety Report 12427616 (Version 2)
Quarter: 2017Q1

REPORT INFORMATION
  Report Type: Spontaneous
  Country: PE (occurrence: PE)
  Receive Date: 20160602
  Receipt Date: 20170203
  Transmission Date: 20170428
  Serious: Yes (Other)
  Sender: FDA-Public Use
  Company Number: PE-SUN PHARMACEUTICAL INDUSTRIES LTD-2016RR-117681

PATIENT
  Age: 36 Year
  Sex: Female

DRUGS (7)
  1. CIPROFLOXACIN. [Suspect]
     Active Substance: CIPROFLOXACIN
     Indication: SEPSIS
     Dosage: UNK
     Route: 065
  2. BEVACIZUMAB [Suspect]
     Active Substance: BEVACIZUMAB
     Indication: OVARIAN CANCER STAGE III
     Dosage: UNK
     Route: 065
  3. CARBOPLATIN. [Suspect]
     Active Substance: CARBOPLATIN
     Indication: OVARIAN CANCER STAGE III
     Dosage: UNK
     Route: 065
  4. MEROPENEM. [Suspect]
     Active Substance: MEROPENEM
     Indication: SEPSIS
     Dosage: UNK
     Route: 042
  5. METRONIDAZOLE. [Suspect]
     Active Substance: METRONIDAZOLE
     Indication: SEPSIS
     Dosage: UNK
     Route: 042
  6. PACLITAXEL. [Suspect]
     Active Substance: PACLITAXEL
     Indication: OVARIAN CANCER STAGE III
     Dosage: UNK
     Route: 065
  7. TIGECYCLINE. [Suspect]
     Active Substance: TIGECYCLINE
     Indication: SEPSIS
     Dosage: UNK
     Route: 042

REACTIONS (2)
  - Endocarditis [Recovered/Resolved]
  - Candida infection [Recovered/Resolved]
